FAERS Safety Report 8591487-1 (Version None)
Quarter: 2012Q3

REPORT INFORMATION
  Report Type: 
  Country: None (occurrence: None)
  Receive Date: 20120814
  Receipt Date: 20120808
  Transmission Date: 20120928
  Serious: No
  Sender: FDA-Public Use
  Company Number: US-BAYER-2012-081851

PATIENT
  Sex: Female

DRUGS (1)
  1. MIRENA [Suspect]
     Dosage: 20 MCG/24HR, CONT
     Route: 015
     Dates: start: 20120806, end: 20120809

REACTIONS (4)
  - NAUSEA [None]
  - ABDOMINAL PAIN LOWER [None]
  - DIZZINESS [None]
  - PAIN [None]
